FAERS Safety Report 8915211 (Version 1)
Quarter: 2012Q4

REPORT INFORMATION
  Report Type: 
  Country: US (occurrence: US)
  Receive Date: 20121119
  Receipt Date: 20121119
  Transmission Date: 20130627
  Serious: Yes (Other)
  Sender: FDA-Public Use
  Company Number: US-PFIZER INC-2012288429

PATIENT
  Age: 73 Year
  Sex: Female
  Weight: 65.76 kg

DRUGS (2)
  1. LYRICA [Suspect]
     Indication: FIBROMYALGIA
     Dosage: 225 mg, daily
     Route: 048
     Dates: start: 201206
  2. CELEBREX [Suspect]
     Indication: OSTEOARTHRITIS
     Dosage: 200 mg, daily
     Route: 048

REACTIONS (1)
  - Arthropathy [Unknown]
